FAERS Safety Report 7438245-9 (Version None)
Quarter: 2011Q2

REPORT INFORMATION
  Report Type: 
  Country: None (occurrence: None)
  Receive Date: 20110426
  Receipt Date: 20101101
  Transmission Date: 20111010
  Serious: Yes (Hospitalization)
  Sender: FDA-Public Use
  Company Number: US-BAYER-201033406NA

PATIENT
  Age: 48 Year
  Sex: Female
  Weight: 56.689 kg

DRUGS (8)
  1. BONIVA [Concomitant]
     Dosage: 150 MG, UNK
  2. VITAMIN B1 TAB [Concomitant]
  3. YASMIN [Suspect]
     Indication: MENOPAUSAL SYMPTOMS
     Dosage: UNK
     Dates: start: 20060404, end: 20060516
  4. VITAMIN B12 [Concomitant]
  5. IBUPROFEN (ADVIL) [Concomitant]
     Dosage: UNK UNK, PRN
  6. UNCODEABLE ^UNCLASSIFIABLE^ [Concomitant]
  7. HERBALS NOS W/VITAMINS NOS [Concomitant]
  8. MULTI-VITAMIN [Concomitant]

REACTIONS (7)
  - PAIN [None]
  - DISABILITY [None]
  - HEMIPARESIS [None]
  - QUALITY OF LIFE DECREASED [None]
  - CEREBROVASCULAR ACCIDENT [None]
  - COGNITIVE DISORDER [None]
  - ANXIETY [None]
